FAERS Safety Report 7986142-2 (Version None)
Quarter: 2011Q4

REPORT INFORMATION
  Report Type: 
  Country: None (occurrence: None)
  Receive Date: 20111216
  Receipt Date: 20111214
  Transmission Date: 20120403
  Serious: Yes (Other)
  Sender: FDA-Public Use
  Company Number: JP-PFIZER INC-2011304682

PATIENT
  Age: 72 Year
  Sex: Female

DRUGS (2)
  1. ALPRAZOLAM [Suspect]
     Dosage: UNK
     Route: 048
  2. CLARITHROMYCIN [Suspect]
     Indication: NASOPHARYNGITIS
     Dosage: UNK
     Route: 048

REACTIONS (4)
  - TREMOR [None]
  - HYPERHIDROSIS [None]
  - LOSS OF CONSCIOUSNESS [None]
  - NASOPHARYNGITIS [None]
